FAERS Safety Report 21491962 (Version 1)
Quarter: 2022Q4

REPORT INFORMATION
  Report Type: Spontaneous
  Country: AU (occurrence: AU)
  Receive Date: 20221021
  Receipt Date: 20221021
  Transmission Date: 20230113
  Serious: Yes (Death, Congenital Anomaly, Other)
  Sender: FDA-Public Use
  Company Number: AU-MYLANLABS-2022M1115784

PATIENT

DRUGS (1)
  1. WARFARIN [Suspect]
     Active Substance: WARFARIN
     Indication: Anticoagulant therapy
     Dosage: UNK
     Route: 064

REACTIONS (4)
  - Foetal death [Fatal]
  - Dandy-Walker syndrome [Fatal]
  - Haemorrhage foetal [Fatal]
  - Foetal exposure during pregnancy [Recovered/Resolved]
